FAERS Safety Report 4824397-3 (Version None)
Quarter: 2005Q4

REPORT INFORMATION
  Report Type: 
  Country: None (occurrence: None)
  Receive Date: 20051108
  Receipt Date: 20051024
  Transmission Date: 20060501
  Serious: Yes (Life-Threatening)
  Sender: FDA-Public Use
  Company Number: 2005S1010594

PATIENT
  Sex: Male

DRUGS (1)
  1. MAPROTILINE HYDROCHLORIDE [Suspect]
     Indication: DEPRESSION
     Dosage: 75 MG ; QD; ORAL
     Route: 048
     Dates: start: 20050901

REACTIONS (2)
  - HYPOGLYCAEMIA [None]
  - LOSS OF CONSCIOUSNESS [None]
